FAERS Safety Report 22922626 (Version 2)
Quarter: 2024Q3

REPORT INFORMATION
  Report Type: Spontaneous
  Country: US (occurrence: None)
  Receive Date: 20230908
  Receipt Date: 20240906
  Transmission Date: 20241017
  Serious: No
  Sender: DOMPE FARMACEUTICI
  Company Number: US-FARMAPROD-202303-0719

PATIENT
  Sex: Female
  Weight: 79.38 kg

DRUGS (13)
  1. OXERVATE [Suspect]
     Active Substance: CENEGERMIN-BKBJ
     Indication: Neurotrophic keratopathy
     Route: 047
     Dates: start: 20230206, end: 20230404
  2. OXERVATE [Suspect]
     Active Substance: CENEGERMIN-BKBJ
     Route: 047
     Dates: start: 20240108
  3. OXERVATE [Suspect]
     Active Substance: CENEGERMIN-BKBJ
  4. XIFAXAN [Concomitant]
     Active Substance: RIFAXIMIN
  5. REFRESH DIGITAL [Concomitant]
     Active Substance: CARBOXYMETHYLCELLULOSE SODIUM\GLYCERIN\POLYSORBATE 80
     Dosage: 0.5-1-0.5%
  6. VALACYCLOVIR [Concomitant]
     Active Substance: VALACYCLOVIR HYDROCHLORIDE
  7. SYSTANE COMPLETE [Concomitant]
     Active Substance: PROPYLENE GLYCOL
  8. ACETAMINOPHEN [Concomitant]
     Active Substance: ACETAMINOPHEN
  9. ERYTHROMYCIN [Concomitant]
     Active Substance: ERYTHROMYCIN
  10. TAMIFLU [Concomitant]
     Active Substance: OSELTAMIVIR PHOSPHATE
  11. VENLAFAXINE HCL [Concomitant]
     Active Substance: VENLAFAXINE HYDROCHLORIDE
     Dosage: EXTENDED RELEASE 24 HOURS.
  12. MOXIFLOXACIN [Concomitant]
     Active Substance: MOXIFLOXACIN
  13. PREDNISOLONE-NEPAFENAC [Concomitant]

REACTIONS (4)
  - Eye pain [Not Recovered/Not Resolved]
  - Foreign body sensation in eyes [Unknown]
  - Ophthalmic migraine [Unknown]
  - Oculogyric crisis [Unknown]
